FAERS Safety Report 5023406-9 (Version None)
Quarter: 2006Q2

REPORT INFORMATION
  Report Type: 
  Country: None (occurrence: None)
  Receive Date: 20060612
  Receipt Date: 20060529
  Transmission Date: 20061013
  Serious: Yes (Hospitalization)
  Sender: FDA-Public Use
  Company Number: FR-AVENTIS-200611961FR

PATIENT
  Age: 76 Year
  Sex: Male
  Weight: 94 kg

DRUGS (9)
  1. LASILIX [Suspect]
     Indication: ESSENTIAL HYPERTENSION
     Route: 048
  2. ACTOS [Suspect]
     Indication: DIABETES MELLITUS
     Route: 048
  3. KALEORID [Suspect]
     Indication: DRUG USE FOR UNKNOWN INDICATION
     Route: 048
  4. GLUCOR [Suspect]
     Indication: DIABETES MELLITUS
     Route: 048
     Dates: end: 20060418
  5. AMIODARONE [Suspect]
     Indication: DRUG USE FOR UNKNOWN INDICATION
     Route: 048
  6. NOVONORM [Suspect]
     Indication: DIABETES MELLITUS
     Route: 048
     Dates: end: 20060418
  7. EUPRESSYL [Concomitant]
     Indication: DRUG USE FOR UNKNOWN INDICATION
  8. ORBENINE [Concomitant]
     Indication: DRUG USE FOR UNKNOWN INDICATION
  9. DOLIPRANE [Concomitant]
     Indication: DRUG USE FOR UNKNOWN INDICATION

REACTIONS (6)
  - BENIGN PROSTATIC HYPERPLASIA [None]
  - BLOOD SODIUM INCREASED [None]
  - KIDNEY ENLARGEMENT [None]
  - OEDEMA [None]
  - SPLENOMEGALY [None]
  - WEIGHT INCREASED [None]
